FAERS Safety Report 13409799 (Version 1)
Quarter: 2017Q2

REPORT INFORMATION
  Report Type: Spontaneous
  Country: ES (occurrence: ES)
  Receive Date: 20170406
  Receipt Date: 20170406
  Transmission Date: 20170830
  Serious: Yes (Other)
  Sender: FDA-Public Use
  Company Number: ES-ASTELLAS-2017US012720

PATIENT
  Age: 65 Year
  Sex: Male

DRUGS (1)
  1. AMBISOME [Suspect]
     Active Substance: AMPHOTERICIN B
     Indication: SYSTEMIC MYCOSIS
     Route: 065
     Dates: start: 20170220, end: 20170320

REACTIONS (2)
  - Aspergillus test [Recovered/Resolved]
  - Systemic mycosis [Recovered/Resolved]
